FAERS Safety Report 15853790 (Version 1)
Quarter: 2019Q1

REPORT INFORMATION
  Report Type: Spontaneous
  Country: JP (occurrence: JP)
  Receive Date: 20190122
  Receipt Date: 20190122
  Transmission Date: 20190417
  Serious: Yes (Other)
  Sender: FDA-Public Use
  Company Number: JP-GLAXOSMITHKLINE-JP2019JPN006623

PATIENT
  Age: 58 Year
  Sex: Female
  Weight: 37 kg

DRUGS (11)
  1. ANHIBA SUPPOSITORIES [Concomitant]
     Dosage: UNK
  2. BLOPRESS [Concomitant]
     Active Substance: CANDESARTAN CILEXETIL
     Dosage: UNK
  3. AMLODIPINE BESILATE [Concomitant]
     Active Substance: AMLODIPINE BESYLATE
     Dosage: UNK
  4. MAGMITT [Concomitant]
     Active Substance: MAGNESIUM OXIDE
     Dosage: UNK
  5. LOXOPROFEN [Concomitant]
     Active Substance: LOXOPROFEN
     Dosage: UNK
  6. LANSOPRAZOLE. [Concomitant]
     Active Substance: LANSOPRAZOLE
     Dosage: UNK
  7. RISPERDAL [Concomitant]
     Active Substance: RISPERIDONE
     Dosage: UNK
  8. POLAPREZINC [Concomitant]
     Active Substance: POLAPREZINC
     Dosage: UNK
  9. FERROMIA (JAPAN) [Concomitant]
     Dosage: UNK
  10. RIKKUNSHITOU [Concomitant]
     Dosage: UNK
  11. VALTREX [Suspect]
     Active Substance: VALACYCLOVIR HYDROCHLORIDE
     Indication: HERPES ZOSTER
     Dosage: 1000 MG, BID
     Route: 048
     Dates: start: 20190109

REACTIONS (7)
  - Constipation [Unknown]
  - Prescribed underdose [Unknown]
  - Urinary retention [Unknown]
  - Product use issue [Unknown]
  - Gastrointestinal sounds abnormal [Unknown]
  - Diarrhoea [Unknown]
  - Ileus [Unknown]

NARRATIVE: CASE EVENT DATE: 20190109
